FAERS Safety Report 21608531 (Version 8)
Quarter: 2024Q1

REPORT INFORMATION
  Report Type: Spontaneous
  Country: US (occurrence: US)
  Receive Date: 20221117
  Receipt Date: 20240331
  Transmission Date: 20240410
  Serious: Yes (Other)
  Sender: FDA-Public Use
  Company Number: US-BRISTOL-MYERS SQUIBB COMPANY-2022-137148

PATIENT
  Age: 69 Year
  Sex: Male
  Weight: 71.21 kg

DRUGS (3)
  1. REVLIMID [Suspect]
     Active Substance: LENALIDOMIDE
     Indication: Plasma cell myeloma
     Dosage: DAILY ON DAYS 1-21 OF 28 DAY CYCLE
     Route: 048
     Dates: start: 20211116
  2. REVLIMID [Suspect]
     Active Substance: LENALIDOMIDE
     Dosage: D 1-21 Q 28 DAY
     Route: 048
     Dates: start: 20220726
  3. REVLIMID [Suspect]
     Active Substance: LENALIDOMIDE
     Dosage: D 1-21 Q 28 DAY
     Route: 048
     Dates: start: 20230909

REACTIONS (7)
  - Blood phosphorus decreased [Not Recovered/Not Resolved]
  - COVID-19 [Recovered/Resolved]
  - Neuropathy peripheral [Not Recovered/Not Resolved]
  - Blood calcium decreased [Not Recovered/Not Resolved]
  - Haemoglobin decreased [Not Recovered/Not Resolved]
  - Blood phosphorus increased [Recovered/Resolved]
  - Diarrhoea [Recovered/Resolved]
